FAERS Safety Report 16187215 (Version 2)
Quarter: 2019Q2

REPORT INFORMATION
  Report Type: Spontaneous
  Country: ES (occurrence: ES)
  Receive Date: 20190411
  Receipt Date: 20190605
  Transmission Date: 20190711
  Serious: Yes (Hospitalization, Other)
  Sender: FDA-Public Use
  Company Number: ES-ROCHE-2300079

PATIENT
  Age: 77 Year
  Sex: Female

DRUGS (5)
  1. BEVACIZUMAB. [Suspect]
     Active Substance: BEVACIZUMAB
     Indication: OFF LABEL USE
  2. CLONAZEPAM. [Suspect]
     Active Substance: CLONAZEPAM
     Indication: ANOSMIA
     Route: 065
  3. CLONAZEPAM. [Suspect]
     Active Substance: CLONAZEPAM
     Indication: AGEUSIA
  4. CLONAZEPAM. [Suspect]
     Active Substance: CLONAZEPAM
     Indication: OFF LABEL USE
  5. BEVACIZUMAB. [Suspect]
     Active Substance: BEVACIZUMAB
     Indication: AGE-RELATED MACULAR DEGENERATION
     Route: 050

REACTIONS (9)
  - Lymphadenopathy mediastinal [Recovering/Resolving]
  - Ageusia [Recovering/Resolving]
  - Decreased appetite [Unknown]
  - Intentional product use issue [Unknown]
  - Dyspnoea [Recovered/Resolved]
  - Pneumonia [Recovering/Resolving]
  - Off label use [Unknown]
  - Anosmia [Recovering/Resolving]
  - Drug intolerance [Unknown]
